FAERS Safety Report 6184255-1 (Version None)
Quarter: 2009Q2

REPORT INFORMATION
  Report Type: 
  Country: None (occurrence: None)
  Receive Date: 20090508
  Receipt Date: 20090428
  Transmission Date: 20091009
  Serious: Yes (Other)
  Sender: FDA-Public Use
  Company Number: BE-PFIZER INC-2009181997

PATIENT
  Age: 63 Year

DRUGS (6)
  1. CHAMPIX [Suspect]
     Dosage: 1 MG, 2X/DAY
     Route: 048
  2. ALISKIREN [Concomitant]
     Dosage: UNK
     Route: 048
  3. AMLODIPINE BESYLATE [Concomitant]
     Dosage: UNK
     Route: 048
  4. SPIDIFEN [Concomitant]
     Dosage: UNK
     Route: 048
  5. ASAFLOW [Concomitant]
     Dosage: UNK
     Route: 048
  6. ALPRAZOLAM [Concomitant]
     Dosage: UNK
     Route: 048

REACTIONS (3)
  - DIZZINESS [None]
  - PARAESTHESIA [None]
  - POLYNEUROPATHY [None]
